FAERS Safety Report 9515210 (Version 1)
Quarter: 2013Q3

REPORT INFORMATION
  Report Type: Spontaneous
  Country: ME (occurrence: ME)
  Receive Date: 20130911
  Receipt Date: 20130911
  Transmission Date: 20140515
  Serious: Yes (Death)
  Sender: FDA-Public Use
  Company Number: ME-ROCHE-1272175

PATIENT
  Age: 54 Year
  Sex: Male
  Weight: 57 kg

DRUGS (3)
  1. MIRCERA [Suspect]
     Indication: NEPHROGENIC ANAEMIA
     Route: 042
     Dates: start: 201212, end: 201307
  2. PROPRANOLOL [Concomitant]
     Indication: HYPERTENSION
     Route: 048
  3. CALCIUM CARBONATE [Concomitant]
     Indication: RENAL FAILURE CHRONIC
     Route: 048

REACTIONS (1)
  - Oesophageal varices haemorrhage [Fatal]
